FAERS Safety Report 6999468-6 (Version None)
Quarter: 2010Q3

REPORT INFORMATION
  Report Type: 
  Country: None (occurrence: None)
  Receive Date: 20100920
  Receipt Date: 20071231
  Transmission Date: 20110219
  Serious: Yes (Other)
  Sender: FDA-Public Use
  Company Number: US-ASTRAZENECA-2006UW08458

PATIENT
  Sex: Female

DRUGS (7)
  1. SEROQUEL [Suspect]
     Indication: SLEEP DISORDER
     Route: 048
     Dates: start: 20050101, end: 20060101
  2. REMERON [Concomitant]
     Dates: start: 20040202
  3. EFFEXOR XR [Concomitant]
     Dosage: 37.5 MG-112.5 MG DAILY
     Dates: start: 20010318
  4. SONATA [Concomitant]
     Indication: SLEEP DISORDER
     Dates: start: 20020326
  5. PAXIL [Concomitant]
     Dates: start: 20010901
  6. TRAZODONE HCL [Concomitant]
     Dates: start: 20050619
  7. LIPITOR [Concomitant]
     Dates: start: 20050619

REACTIONS (2)
  - DIABETES MELLITUS [None]
  - DIABETIC KETOACIDOSIS [None]
